FAERS Safety Report 9419507 (Version 1)
Quarter: 2013Q3

REPORT INFORMATION
  Report Type: Spontaneous
  Country: FR (occurrence: FR)
  Receive Date: 20130725
  Receipt Date: 20130725
  Transmission Date: 20140515
  Serious: Yes (Life-Threatening, Hospitalization, Other)
  Sender: FDA-Public Use
  Company Number: FR-PFIZER INC-2013212559

PATIENT
  Age: 1 Month
  Sex: Male
  Weight: 4.09 kg

DRUGS (7)
  1. EPANUTIN [Suspect]
     Indication: CONVULSION
     Dosage: 8 MG, 2X/DAY
     Route: 048
     Dates: start: 20130412
  2. EPANUTIN [Suspect]
     Dosage: 32 MG, 2X/DAY
     Route: 048
  3. EPANUTIN [Suspect]
     Dosage: 48 MG, 2X/DAY
     Route: 049
     Dates: end: 20130513
  4. KANEURON [Concomitant]
     Dosage: 6 MG, 1X/DAY
     Route: 048
     Dates: start: 20130412, end: 20130513
  5. BIOTIN [Concomitant]
     Dosage: 20 MG, 2X/DAY
     Route: 048
     Dates: start: 201304
  6. PYRIDOXIN [Concomitant]
     Dosage: 10 MG, 3X/DAY
     Route: 048
     Dates: start: 201304
  7. UVESTEROL [Concomitant]
     Dosage: 1 ML, 1X/DAY
     Route: 048
     Dates: start: 201304

REACTIONS (7)
  - Overdose [Recovered/Resolved]
  - Anticonvulsant drug level increased [Recovered/Resolved]
  - Somnolence [Recovered/Resolved]
  - Hypertonia [Recovered/Resolved]
  - Constipation [Recovered/Resolved]
  - Grand mal convulsion [Recovered/Resolved]
  - Vomiting [Unknown]
